FAERS Safety Report 14424085 (Version 1)
Quarter: 2018Q1

REPORT INFORMATION
  Report Type: Spontaneous
  Country: US (occurrence: US)
  Receive Date: 20180119
  Receipt Date: 20180119
  Transmission Date: 20180509
  Serious: Yes (Hospitalization)
  Sender: FDA-Public Use
  Company Number: None

PATIENT
  Age: 73 Year
  Sex: Female

DRUGS (5)
  1. COLLAGENASE OINTMENT [Concomitant]
     Active Substance: COLLAGENASE CLOSTRIDIUM HISTOLYTICUM
  2. CEFAZOLIN [Concomitant]
     Active Substance: CEFAZOLIN
  3. LEVOTHYROXINE. [Concomitant]
     Active Substance: LEVOTHYROXINE
  4. IBUPROFEN. [Suspect]
     Active Substance: IBUPROFEN
     Indication: PAIN
     Route: 048
     Dates: start: 20171031, end: 20171031
  5. PIPERACILLIN/TAZOBACTAM [Concomitant]
     Active Substance: PIPERACILLIN SODIUM\TAZOBACTAM SODIUM

REACTIONS (9)
  - Ulcer [None]
  - Retroperitoneal abscess [None]
  - Staphylococcal bacteraemia [None]
  - Rash [None]
  - Arthralgia [None]
  - Hypotension [None]
  - Melaena [None]
  - Influenza like illness [None]
  - Pneumoperitoneum [None]

NARRATIVE: CASE EVENT DATE: 20171109
